FAERS Safety Report 5947522-X (Version None)
Quarter: 2008Q4

REPORT INFORMATION
  Report Type: 
  Country: None (occurrence: None)
  Receive Date: 20081110
  Receipt Date: 20081031
  Transmission Date: 20090506
  Serious: Yes (Other)
  Sender: FDA-Public Use
  Company Number: PHEH2008US09628

PATIENT
  Sex: Female

DRUGS (3)
  1. DIOVAN [Suspect]
  2. EXFORGE [Suspect]
  3. INSULIN [Concomitant]

REACTIONS (5)
  - BLINDNESS [None]
  - BLOOD PRESSURE INCREASED [None]
  - DIABETES MELLITUS [None]
  - DRUG INEFFECTIVE [None]
  - NEUROPATHY PERIPHERAL [None]
